FAERS Safety Report 14082225 (Version 1)
Quarter: 2017Q4

REPORT INFORMATION
  Report Type: Spontaneous
  Country: RU (occurrence: RU)
  Receive Date: 20171013
  Receipt Date: 20171013
  Transmission Date: 20180321
  Serious: Yes (Other)
  Sender: FDA-Public Use
  Company Number: RU-GLAXOSMITHKLINE-RU2017GSK154823

PATIENT
  Age: 63 Year
  Sex: Male
  Weight: 84 kg

DRUGS (4)
  1. SPIRIVA [Concomitant]
     Active Substance: TIOTROPIUM BROMIDE MONOHYDRATE
     Indication: ASTHMA
     Dosage: 5 UG, UNK
     Route: 055
  2. NOVORAPID [Concomitant]
     Active Substance: INSULIN ASPART
     Indication: DIABETES MELLITUS
     Dosage: 46 DF, UNK, UNIT
     Route: 042
  3. RELVAR ELLIPTA [Suspect]
     Active Substance: FLUTICASONE FUROATE\VILANTEROL TRIFENATATE
     Indication: ASTHMA
     Dosage: UNK,22/92
     Dates: start: 20170930, end: 20171001
  4. LANTUS (INSULINA GLARGINA) [Concomitant]
     Indication: DIABETES MELLITUS
     Dosage: 42 DF, UNK,UNIT
     Route: 042

REACTIONS (2)
  - Asphyxia [Recovered/Resolved]
  - Tracheal pain [Unknown]

NARRATIVE: CASE EVENT DATE: 20170930
